FAERS Safety Report 23397329 (Version 4)
Quarter: 2025Q1

REPORT INFORMATION
  Report Type: Report from Study
  Country: GB (occurrence: GB)
  Receive Date: 20240112
  Receipt Date: 20250214
  Transmission Date: 20250408
  Serious: Yes (Other)
  Sender: IPSEN BIOPHARMACEUTICALS, INC.
  Company Number: GB-IPSEN Group, Research and Development-2010-2418

PATIENT
  Age: 7 Year
  Sex: Female
  Weight: 15.7 kg

DRUGS (8)
  1. INCRELEX [Suspect]
     Active Substance: MECASERMIN
     Indication: Severe primary insulin like growth factor-1 deficiency
     Dosage: 0.04 MG/KG, BID
     Route: 058
     Dates: start: 20090414
  2. INCRELEX [Suspect]
     Active Substance: MECASERMIN
     Dosage: 0.07 MG/KG, BID
     Route: 058
     Dates: start: 20090422
  3. INCRELEX [Suspect]
     Active Substance: MECASERMIN
     Dosage: 0.01 MG/KG, BID
     Route: 058
     Dates: start: 20090427
  4. INCRELEX [Suspect]
     Active Substance: MECASERMIN
     Dosage: 0.11 MG/KG, BID
     Route: 058
     Dates: start: 20131107
  5. INCRELEX [Suspect]
     Active Substance: MECASERMIN
     Dosage: 0.11 MG/KG, BID
     Route: 058
     Dates: start: 201402
  6. INCRELEX [Suspect]
     Active Substance: MECASERMIN
     Dosage: 0.12 MG/KG, BID
     Route: 058
     Dates: start: 20140306
  7. INCRELEX [Suspect]
     Active Substance: MECASERMIN
     Dosage: 106 UG/KG, BID
     Route: 058
     Dates: start: 20140829
  8. INCRELEX [Suspect]
     Active Substance: MECASERMIN
     Dosage: 100 UG/KG, BID
     Route: 058
     Dates: start: 20150205

REACTIONS (1)
  - Acromegaly [Recovered/Resolved]

NARRATIVE: CASE EVENT DATE: 20100701
